FAERS Safety Report 12676101 (Version 1)
Quarter: 2016Q3

REPORT INFORMATION
  Report Type: Spontaneous
  Country: US (occurrence: US)
  Receive Date: 20160823
  Receipt Date: 20160823
  Transmission Date: 20161109
  Serious: No
  Sender: FDA-Public Use
  Company Number: US-ASTRAZENECA-2016SE52519

PATIENT
  Sex: Female
  Weight: 77.6 kg

DRUGS (2)
  1. ARIMIDEX [Suspect]
     Active Substance: ANASTROZOLE
     Indication: BREAST CANCER FEMALE
     Route: 048
     Dates: start: 201111
  2. ARIMIDEX [Suspect]
     Active Substance: ANASTROZOLE
     Indication: BREAST CANCER FEMALE
     Route: 048

REACTIONS (19)
  - Dizziness [Not Recovered/Not Resolved]
  - Nausea [Unknown]
  - Onychoclasis [Not Recovered/Not Resolved]
  - Anxiety [Recovered/Resolved]
  - Temperature intolerance [Not Recovered/Not Resolved]
  - Insomnia [Not Recovered/Not Resolved]
  - Throat tightness [Recovering/Resolving]
  - Depressed mood [Unknown]
  - Depression [Unknown]
  - Asthenia [Unknown]
  - Mood altered [Unknown]
  - Panic disorder [Unknown]
  - Rash [Not Recovered/Not Resolved]
  - Syncope [Not Recovered/Not Resolved]
  - Blood cholesterol increased [Unknown]
  - Dyspepsia [Recovering/Resolving]
  - Headache [Unknown]
  - Arthralgia [Not Recovered/Not Resolved]
  - Fatigue [Unknown]
